FAERS Safety Report 8382779-X (Version None)
Quarter: 2012Q2

REPORT INFORMATION
  Report Type: 
  Country: None (occurrence: None)
  Receive Date: 20120524
  Receipt Date: 20120510
  Transmission Date: 20120825
  Serious: Yes (Life-Threatening, Other)
  Sender: FDA-Public Use
  Company Number: CA-JNJFOC-20120510612

PATIENT
  Sex: Female
  Weight: 62 kg

DRUGS (6)
  1. REMICADE [Suspect]
     Indication: CROHN'S DISEASE
     Dosage: INFUSION NO.5
     Route: 042
     Dates: start: 20120510
  2. VITAMIN D [Concomitant]
     Route: 065
  3. CALCIUM [Concomitant]
     Route: 065
  4. ALL OTHER THERAPEUTICS [Concomitant]
     Indication: GLAUCOMA
     Route: 047
  5. MULTI-VITAMINS [Concomitant]
     Route: 065
  6. REMICADE [Suspect]
     Route: 042
     Dates: start: 20111101

REACTIONS (13)
  - INFUSION RELATED REACTION [None]
  - HIP ARTHROPLASTY [None]
  - FLUSHING [None]
  - CHEST DISCOMFORT [None]
  - CHILLS [None]
  - FEELING HOT [None]
  - MALAISE [None]
  - HEADACHE [None]
  - ERYTHEMA [None]
  - FATIGUE [None]
  - HEART RATE DECREASED [None]
  - FEELING COLD [None]
  - BACK PAIN [None]
